FAERS Safety Report 7473220-X (Version None)
Quarter: 2011Q2

REPORT INFORMATION
  Report Type: 
  Country: None (occurrence: None)
  Receive Date: 20110511
  Receipt Date: 20110503
  Transmission Date: 20111010
  Serious: Yes (Hospitalization)
  Sender: FDA-Public Use
  Company Number: B0716779A

PATIENT
  Sex: Male

DRUGS (9)
  1. AMOXICILLIN AND CLAVULANATE POTASSIUM [Suspect]
     Dosage: 10G PER DAY
     Route: 042
     Dates: start: 20101029, end: 20101112
  2. BUMETANIDE [Suspect]
     Route: 042
     Dates: start: 20101030, end: 20101103
  3. ALPRAZOLAM [Suspect]
     Dosage: .25MG PER DAY
     Route: 048
     Dates: start: 20101115, end: 20101206
  4. EUPRESSYL [Suspect]
     Route: 042
     Dates: start: 20101014, end: 20101121
  5. DORIBAX [Suspect]
     Dosage: 1G PER DAY
     Route: 048
     Dates: start: 20101115, end: 20101126
  6. BACTRIM [Suspect]
     Dosage: 400MG PER DAY
     Route: 042
     Dates: start: 20101029, end: 20101106
  7. ALDOMET [Suspect]
     Route: 048
     Dates: start: 20101115, end: 20110110
  8. ORGARAN [Suspect]
     Route: 058
     Dates: start: 20101025, end: 20110126
  9. LASIX [Suspect]
     Route: 048
     Dates: start: 20101014, end: 20110117

REACTIONS (5)
  - BRONCHOSPASM [None]
  - RASH MACULO-PAPULAR [None]
  - PYREXIA [None]
  - DRUG RASH WITH EOSINOPHILIA AND SYSTEMIC SYMPTOMS [None]
  - PRURITUS [None]
